FAERS Safety Report 8287612-2 (Version None)
Quarter: 2012Q2

REPORT INFORMATION
  Report Type: 
  Country: None (occurrence: None)
  Receive Date: 20120416
  Receipt Date: 20120410
  Transmission Date: 20120825
  Serious: Yes (Death, Hospitalization)
  Sender: FDA-Public Use
  Company Number: PHEH2012US007582

PATIENT
  Age: 60 Year
  Sex: Male

DRUGS (4)
  1. TASIGNA [Suspect]
     Indication: GASTROINTESTINAL STROMAL TUMOUR
  2. TRAMADOL HCL [Concomitant]
  3. TASIGNA [Suspect]
     Indication: SMALL INTESTINE CARCINOMA
     Dosage: 200 MG, Q12H
     Route: 048
     Dates: start: 20120210, end: 20120226
  4. ACIPHEX [Concomitant]

REACTIONS (4)
  - METASTASIS [None]
  - COMA [None]
  - DEATH [None]
  - GASTROINTESTINAL STROMAL TUMOUR [None]
